FAERS Safety Report 4366835-9 (Version None)
Quarter: 2004Q2

REPORT INFORMATION
  Report Type: 
  Country: None (occurrence: None)
  Receive Date: 20040528
  Receipt Date: 20030721
  Transmission Date: 20050107
  Serious: No
  Sender: FDA-Public Use
  Company Number: US-GLAXOSMITHKLINE-A0417639A

PATIENT
  Sex: Male

DRUGS (1)
  1. BACTROBAN [Suspect]
     Indication: WOUND
     Route: 061

REACTIONS (3)
  - BURNING SENSATION [None]
  - PRURITUS [None]
  - SLEEP DISORDER [None]
